FAERS Safety Report 21439330 (Version 1)
Quarter: 2022Q4

REPORT INFORMATION
  Report Type: Spontaneous
  Country: GR (occurrence: GR)
  Receive Date: 20221011
  Receipt Date: 20221011
  Transmission Date: 20230113
  Serious: Yes (Other)
  Sender: FDA-Public Use
  Company Number: GR-MYLANLABS-2022M1092034

PATIENT
  Age: 70 Year
  Sex: Female

DRUGS (3)
  1. MOXONIDINE [Interacting]
     Active Substance: MOXONIDINE
     Indication: Hypertension
     Dosage: 0.3 MILLIGRAM, QD (ONCE DAILY)
     Route: 048
     Dates: start: 202205
  2. XANAX [Interacting]
     Active Substance: ALPRAZOLAM
     Indication: Grief reaction
     Dosage: UNK UNK, QD, 0.5 MG3 MG
     Route: 048
     Dates: start: 202206
  3. XANAX [Interacting]
     Active Substance: ALPRAZOLAM
     Dosage: UNK UNK, QD, FLUCTUATING DOSES THAT RANGE FROM 0.5 TO 2 MG/ DAY
     Route: 048

REACTIONS (3)
  - Hypotension [Recovered/Resolved]
  - Drug interaction [Recovered/Resolved]
  - Intentional product use issue [Recovered/Resolved]
